FAERS Safety Report 4461646-8 (Version None)
Quarter: 2004Q3

REPORT INFORMATION
  Report Type: 
  Country: None (occurrence: None)
  Receive Date: 20040923
  Receipt Date: 20040908
  Transmission Date: 20050211
  Serious: No
  Sender: FDA-Public Use
  Company Number: F02200400060

PATIENT
  Age: 79 Year
  Sex: Male

DRUGS (1)
  1. XATRAL         (ALFUZOSIN) [Suspect]
     Indication: BENIGN PROSTATIC HYPERPLASIA
     Dosage: 10 MG OD, ORAL
     Route: 048
     Dates: start: 20010315, end: 20040517

REACTIONS (2)
  - HYDROCELE [None]
  - PROSTATE CANCER [None]
